FAERS Safety Report 16580087 (Version 1)
Quarter: 2019Q3

REPORT INFORMATION
  Report Type: Spontaneous
  Country: FR (occurrence: FR)
  Receive Date: 20190716
  Receipt Date: 20190716
  Transmission Date: 20191004
  Serious: Yes (Other)
  Sender: FDA-Public Use
  Company Number: FR-MYLANLABS-2019M1066658

PATIENT
  Age: 39 Year
  Sex: Female

DRUGS (6)
  1. OMEPRAZOLE. [Concomitant]
     Active Substance: OMEPRAZOLE
     Dosage: 20 MILLIGRAM, QD
     Route: 048
  2. IMOVANE [Concomitant]
     Active Substance: ZOPICLONE
     Dosage: UNK
     Route: 048
     Dates: start: 2016
  3. ANDROCUR [Suspect]
     Active Substance: CYPROTERONE ACETATE
     Indication: HIRSUTISM
     Dosage: 1 DOSAGE FORM, QD
     Route: 048
     Dates: start: 19961120, end: 20181201
  4. DULOXETINE                         /01749302/ [Concomitant]
     Active Substance: DULOXETINE
     Dosage: UNK
     Route: 048
     Dates: start: 2013
  5. ATENOLOL. [Concomitant]
     Active Substance: ATENOLOL
     Dosage: 50 MILLIGRAM, QD
     Route: 048
     Dates: start: 2012
  6. OROMONE 2 MG, COMPRIM? PELLICUL? [Suspect]
     Active Substance: ESTRADIOL
     Indication: OESTROGEN REPLACEMENT THERAPY
     Dosage: 1 DOSAGE FORM, QD
     Route: 048
     Dates: start: 19961111, end: 20181201

REACTIONS (2)
  - Alcohol abuse [Recovered/Resolved]
  - Alcohol use disorder [Recovered/Resolved]

NARRATIVE: CASE EVENT DATE: 2010
